FAERS Safety Report 9851313 (Version 2)
Quarter: 2014Q1

REPORT INFORMATION
  Report Type: Report from Study
  Country: US (occurrence: US)
  Receive Date: 20140129
  Receipt Date: 20140212
  Transmission Date: 20141002
  Serious: Yes (Hospitalization)
  Sender: FDA-Public Use
  Company Number: US-ROCHE-1337729

PATIENT
  Age: 6 Year
  Sex: Male
  Weight: 19.2 kg

DRUGS (5)
  1. NUTROPIN [Suspect]
     Indication: HYPOPITUITARISM
     Dosage: -MAR-2013
     Route: 058
  2. NUTROPIN [Suspect]
     Route: 058
  3. LEVOTHYROXINE SODIUM [Concomitant]
     Indication: HYPOPITUITARISM
     Route: 065
  4. CORTEF [Concomitant]
     Indication: HYPOPITUITARISM
     Route: 065
  5. ZOFRAN [Concomitant]

REACTIONS (5)
  - Gastroenteritis [Recovering/Resolving]
  - Dehydration [Recovering/Resolving]
  - Malaise [Recovering/Resolving]
  - Fatigue [Recovering/Resolving]
  - Otitis media [Recovered/Resolved]
